FAERS Safety Report 7004408-X (Version None)
Quarter: 2010Q3

REPORT INFORMATION
  Report Type: 
  Country: None (occurrence: None)
  Receive Date: 20100921
  Receipt Date: 20100910
  Transmission Date: 20110219
  Serious: No
  Sender: FDA-Public Use
  Company Number: US-BIOGENIDEC-2010BI031921

PATIENT
  Sex: Female

DRUGS (1)
  1. TYSABRI [Suspect]
     Indication: MULTIPLE SCLEROSIS
     Route: 042
     Dates: start: 20070921

REACTIONS (5)
  - HEADACHE [None]
  - LACRIMATION INCREASED [None]
  - NASOPHARYNGITIS [None]
  - RHINORRHOEA [None]
  - UPPER RESPIRATORY TRACT CONGESTION [None]
